FAERS Safety Report 7609737-4 (Version None)
Quarter: 2011Q3

REPORT INFORMATION
  Report Type: 
  Country: None (occurrence: None)
  Receive Date: 20110714
  Receipt Date: 20110701
  Transmission Date: 20111222
  Serious: Yes (Death, Other)
  Sender: FDA-Public Use
  Company Number: DK-MYLANLABS-2011S1013997

PATIENT
  Age: 77 Year
  Sex: Female

DRUGS (3)
  1. FLUCONAZOLE [Suspect]
     Route: 065
  2. VENLAFAXINE [Concomitant]
     Indication: DEPRESSION
     Route: 065
  3. AMLODIPINE [Interacting]
     Indication: HYPERTENSION
     Route: 065

REACTIONS (3)
  - ASPHYXIA [None]
  - DRUG INTERACTION [None]
  - DRUG LEVEL INCREASED [None]
